FAERS Safety Report 18774390 (Version 1)
Quarter: 2021Q1

REPORT INFORMATION
  Report Type: Spontaneous
  Country: US (occurrence: US)
  Receive Date: 20210122
  Receipt Date: 20210122
  Transmission Date: 20210419
  Serious: No
  Sender: FDA-Public Use
  Company Number: None

PATIENT
  Age: 72 Year
  Sex: Male

DRUGS (1)
  1. LOKELMA [Suspect]
     Active Substance: SODIUM ZIRCONIUM CYCLOSILICATE
     Dosage: ?          OTHER FREQUENCY:THREE TIMES A WEEK;?
     Route: 048

REACTIONS (3)
  - Glossodynia [None]
  - Tremor [None]
  - Heart rate decreased [None]

NARRATIVE: CASE EVENT DATE: 20200117
